FAERS Safety Report 24926705 (Version 1)
Quarter: 2025Q1

REPORT INFORMATION
  Report Type: Spontaneous
  Country: IE (occurrence: IE)
  Receive Date: 20250205
  Receipt Date: 20250205
  Transmission Date: 20250409
  Serious: Yes (Hospitalization)
  Sender: ASTELLAS
  Company Number: None

PATIENT
  Age: 68 Year
  Sex: Female

DRUGS (3)
  1. MIRABEGRON [Suspect]
     Active Substance: MIRABEGRON
     Indication: Stress urinary incontinence
     Route: 048
     Dates: start: 20241119, end: 202412
  2. VAGIFEM [Concomitant]
     Active Substance: ESTRADIOL
     Indication: Oestrogen deficiency
     Route: 067
  3. MACRODANTIN [Concomitant]
     Active Substance: NITROFURANTOIN
     Indication: Infection prophylaxis
     Dosage: NOCTE
     Route: 048
     Dates: start: 20241119

REACTIONS (2)
  - Hypertension [Recovered/Resolved]
  - Fall [Recovered/Resolved]

NARRATIVE: CASE EVENT DATE: 20241201
